FAERS Safety Report 4290922-7 (Version None)
Quarter: 2004Q1

REPORT INFORMATION
  Report Type: 
  Country: None (occurrence: None)
  Receive Date: 20040209
  Receipt Date: 20040126
  Transmission Date: 20041129
  Serious: Yes (Other)
  Sender: FDA-Public Use
  Company Number: 2004005945

PATIENT
  Age: 68 Year
  Sex: Male
  Weight: 82 kg

DRUGS (12)
  1. DOXAZOSIN MESYLATE [Suspect]
     Indication: HYPERTENSION
     Dosage: ORAL
     Route: 048
     Dates: start: 20021028, end: 20021104
  2. FELODIPINE [Concomitant]
  3. METFORMIN HCL [Concomitant]
  4. GLICLAZIDE [Concomitant]
  5. GLYCERYL TRINITRATE [Concomitant]
  6. ACETYLSALICYLIC ACID SRT [Concomitant]
  7. ISOSORBIDE MONONITRATE [Concomitant]
  8. SIMVASTATIN [Concomitant]
  9. RAMIPRIL [Concomitant]
  10. ATENOLOL [Concomitant]
  11. TENORETIC 100 [Concomitant]
  12. ALL OTHER THERAPEUTIC PRODUCTS [Concomitant]

REACTIONS (2)
  - ANGINA PECTORIS [None]
  - CONDITION AGGRAVATED [None]
